FAERS Safety Report 18432870 (Version 1)
Quarter: 2020Q4

REPORT INFORMATION
  Report Type: Spontaneous
  Country: US (occurrence: US)
  Receive Date: 20201027
  Receipt Date: 20201027
  Transmission Date: 20210114
  Serious: No
  Sender: FDA-Public Use
  Company Number: US-ROCHE-2630987

PATIENT
  Age: 61 Year
  Sex: Female
  Weight: 65.83 kg

DRUGS (2)
  1. XOFLUZA [Suspect]
     Active Substance: BALOXAVIR MARBOXIL
     Indication: COVID-19
     Dosage: TWO 40 MG TABLETS FOR A TOTAL OF 80 MG X 1 DOSE ;ONGOING: NO
     Route: 048
     Dates: start: 20200624, end: 20200624
  2. GLATIRAMER ACETATE. [Concomitant]
     Active Substance: GLATIRAMER ACETATE

REACTIONS (3)
  - No adverse event [Unknown]
  - Off label use [Unknown]
  - Intentional product use issue [Unknown]
